FAERS Safety Report 6677926-1 (Version None)
Quarter: 2010Q2

REPORT INFORMATION
  Report Type: 
  Country: None (occurrence: None)
  Receive Date: 20100412
  Receipt Date: 20100408
  Transmission Date: 20101027
  Serious: Yes (Other)
  Sender: FDA-Public Use
  Company Number: DE-B.I. PHARMACEUTICALS,INC./RIDGEFIELD-2010-DE-02060DE

PATIENT
  Sex: Female

DRUGS (1)
  1. ATROVENT [Suspect]
     Dosage: 250MCG/2ML
     Route: 055

REACTIONS (2)
  - BRONCHOSPASM [None]
  - CHOKING SENSATION [None]
